FAERS Safety Report 18817068 (Version 1)
Quarter: 2021Q1

REPORT INFORMATION
  Report Type: Spontaneous
  Country: US (occurrence: US)
  Receive Date: 20210201
  Receipt Date: 20210201
  Transmission Date: 20210419
  Serious: No
  Sender: FDA-Public Use
  Company Number: US-PFIZER INC-2021008434

PATIENT
  Age: 52 Year
  Sex: Female

DRUGS (1)
  1. PREMARIN [Suspect]
     Active Substance: ESTROGENS, CONJUGATED
     Dosage: UNK (0.025)

REACTIONS (7)
  - Product prescribing error [Unknown]
  - Mood altered [Unknown]
  - Hyperhidrosis [Unknown]
  - Hot flush [Unknown]
  - Hypersomnia [Unknown]
  - Hormone level abnormal [Unknown]
  - Artificial menopause [Unknown]
